FAERS Safety Report 9120669 (Version 2)
Quarter: 2013Q2

REPORT INFORMATION
  Report Type: Spontaneous
  Country: US (occurrence: US)
  Receive Date: 20130226
  Receipt Date: 20130507
  Transmission Date: 20140414
  Serious: No
  Sender: FDA-Public Use
  Company Number: US-PFIZER INC-2013044843

PATIENT
  Age: 75 Year
  Sex: Female

DRUGS (3)
  1. DETROL LA [Suspect]
     Indication: URINARY INCONTINENCE
     Dosage: 4 MG, 2X/DAY
     Route: 048
     Dates: start: 2005
  2. DETROL LA [Suspect]
     Indication: RENAL DISORDER
     Dosage: 8 MG, UNK
  3. DETROL LA [Suspect]
     Indication: HYPERTONIC BLADDER

REACTIONS (3)
  - Incorrect dose administered [Unknown]
  - Drug effect incomplete [Unknown]
  - Drug ineffective [Unknown]
